FAERS Safety Report 12654531 (Version 1)
Quarter: 2016Q3

REPORT INFORMATION
  Report Type: Spontaneous
  Country: IE (occurrence: IE)
  Receive Date: 20160816
  Receipt Date: 20160816
  Transmission Date: 20161109
  Serious: Yes (Hospitalization, Other)
  Sender: FDA-Public Use
  Company Number: IE-SCIEGEN PHARMACEUTICALS INC-2016SCILIT00362

PATIENT
  Age: 62 Year
  Sex: Female

DRUGS (1)
  1. OLMESARTAN MEDOXOMIL TABLETS 5 MG, 20 MG, 40 MG [Suspect]
     Active Substance: OLMESARTAN MEDOXOMIL
     Indication: PRODUCT USED FOR UNKNOWN INDICATION
     Dosage: UNK
     Route: 065

REACTIONS (9)
  - Abdominal pain [Unknown]
  - Urticaria [Unknown]
  - Hypoalbuminaemia [Unknown]
  - Weight decreased [Recovering/Resolving]
  - Diarrhoea [Recovering/Resolving]
  - Duodenitis [Unknown]
  - Decreased appetite [Not Recovered/Not Resolved]
  - Systemic mastocytosis [Unknown]
  - Dehydration [Unknown]
